FAERS Safety Report 10598452 (Version 1)
Quarter: 2014Q4

REPORT INFORMATION
  Report Type: Spontaneous
  Country: IE (occurrence: None)
  Receive Date: 20141119
  Receipt Date: 20141119
  Transmission Date: 20150529
  Serious: Yes (Hospitalization)
  Sender: FDA-Public Use
  Company Number: COR_00151_2014

PATIENT
  Age: 69 Year
  Sex: Female

DRUGS (2)
  1. ETOPOSIDE (ETOPOSIDE) [Suspect]
     Active Substance: ETOPOSIDE
     Indication: SMALL CELL LUNG CANCER
     Dosage: DOSE UNKNOWN DAYS 1, 2, AND 3 OF A 21-DAY CYCLE
  2. CARBOPLATIN (CARBOPLATIN) [Suspect]
     Active Substance: CARBOPLATIN
     Indication: SMALL CELL LUNG CANCER
     Dosage: DOSE UNKNOWN ON DAY 1 OF A 21 DAY CYCLE

REACTIONS (9)
  - Tardive dyskinesia [None]
  - Mouth haemorrhage [None]
  - Unresponsive to stimuli [None]
  - Urinary incontinence [None]
  - Posterior reversible encephalopathy syndrome [None]
  - Headache [None]
  - No therapeutic response [None]
  - Visual acuity reduced [None]
  - Tongue biting [None]
